FAERS Safety Report 11814634 (Version 1)
Quarter: 2015Q4

REPORT INFORMATION
  Report Type: Spontaneous
  Country: US (occurrence: None)
  Receive Date: 20151208
  Receipt Date: 20151208
  Transmission Date: 20160305
  Serious: Yes (Life-Threatening, Hospitalization, Disabling, Other)
  Sender: FDA-Public Use
  Company Number: None

PATIENT
  Age: 66 Year
  Sex: Male
  Weight: 86.18 kg

DRUGS (7)
  1. PRADAXA [Suspect]
     Active Substance: DABIGATRAN ETEXILATE MESYLATE
     Indication: ATRIAL FIBRILLATION
     Dosage: 150?60?2 PER DAY ?MOUTH
     Route: 048
     Dates: start: 2008, end: 20151112
  2. SIMVASTATIN. [Concomitant]
     Active Substance: SIMVASTATIN
  3. METOPROLO [Concomitant]
     Active Substance: METOPROLOL
  4. LOW STRENGTH ASPIRIN [Concomitant]
  5. ECOTRIN [Concomitant]
     Active Substance: ASPIRIN
  6. CARDIZEM [Concomitant]
     Active Substance: DILTIAZEM HYDROCHLORIDE
  7. WARFRIN [Concomitant]

REACTIONS (3)
  - Cerebrovascular accident [None]
  - Speech disorder [None]
  - Confusional state [None]

NARRATIVE: CASE EVENT DATE: 20151112
